FAERS Safety Report 5875725-1 (Version None)
Quarter: 2008Q3

REPORT INFORMATION
  Report Type: 
  Country: None (occurrence: None)
  Receive Date: 20080905
  Receipt Date: 20080821
  Transmission Date: 20090109
  Serious: Yes (Hospitalization, Other)
  Sender: FDA-Public Use
  Company Number: SPV1-2008-01803

PATIENT
  Age: 33 Year
  Sex: Female

DRUGS (1)
  1. CARBATROL [Suspect]
     Indication: CONVULSION
     Dosage: 300 MG, 2X/DAY:BID, ORAL
     Route: 048

REACTIONS (3)
  - DEPRESSION [None]
  - PANCREATITIS [None]
  - UNEVALUABLE EVENT [None]
